FAERS Safety Report 5781655-6 (Version None)
Quarter: 2008Q2

REPORT INFORMATION
  Report Type: 
  Country: None (occurrence: None)
  Receive Date: 20080623
  Receipt Date: 20070725
  Transmission Date: 20081010
  Serious: No
  Sender: FDA-Public Use
  Company Number: US-ASTRAZENECA-2007UW17918

PATIENT
  Age: 74 Year
  Sex: Female
  Weight: 49.9 kg

DRUGS (3)
  1. RHINOCORT [Suspect]
     Indication: HYPERSENSITIVITY
     Route: 045
  2. PULMICORT FLEXHALER [Concomitant]
     Route: 055
  3. LOTREL [Concomitant]

REACTIONS (1)
  - NASAL DRYNESS [None]
